FAERS Safety Report 9709376 (Version 2)
Quarter: 2015Q2

REPORT INFORMATION
  Report Type: Report from Study
  Country: CA (occurrence: CA)
  Receive Date: 20131126
  Receipt Date: 20150424
  Transmission Date: 20150821
  Serious: Yes (Death)
  Sender: FDA-Public Use
  Company Number: CA-ROCHE-1307467

PATIENT
  Age: 71 Year
  Sex: Male

DRUGS (7)
  1. ROSUVASTATIN [Concomitant]
     Active Substance: ROSUVASTATIN
  2. SULCRATE [Concomitant]
     Active Substance: SUCRALFATE
  3. RAMIPRIL. [Concomitant]
     Active Substance: RAMIPRIL
  4. EZETROL [Concomitant]
     Active Substance: EZETIMIBE
  5. PANTOLOC [Concomitant]
     Active Substance: PANTOPRAZOLE SODIUM
  6. XELODA [Suspect]
     Active Substance: CAPECITABINE
     Indication: OESOPHAGEAL CARCINOMA
     Route: 048
     Dates: start: 20130715
  7. AMLODIPINE [Concomitant]
     Active Substance: AMLODIPINE BESYLATE

REACTIONS (2)
  - Cerebrovascular accident [Fatal]
  - Product use issue [Unknown]

NARRATIVE: CASE EVENT DATE: 20130819
